FAERS Safety Report 4563002-0 (Version None)
Quarter: 2005Q1

REPORT INFORMATION
  Report Type: 
  Country: None (occurrence: None)
  Receive Date: 20050127
  Receipt Date: 20050120
  Transmission Date: 20050727
  Serious: Yes (Death, Hospitalization, Other)
  Sender: FDA-Public Use
  Company Number: JP-ABBOTT-05P-087-0287788-00

PATIENT
  Age: 100 Year
  Sex: Female

DRUGS (2)
  1. CLARITH [Suspect]
     Indication: VIRAL INFECTION
     Route: 048
     Dates: start: 20020101
  2. UNSPECIFIED ANTIBIOTICS [Concomitant]
     Indication: VIRAL INFECTION

REACTIONS (2)
  - GENERAL PHYSICAL HEALTH DETERIORATION [None]
  - RASH ERYTHEMATOUS [None]
